FAERS Safety Report 16099043 (Version 1)
Quarter: 2019Q1

REPORT INFORMATION
  Report Type: Spontaneous
  Country: US (occurrence: US)
  Receive Date: 20190321
  Receipt Date: 20190321
  Transmission Date: 20190418
  Serious: Yes (Other)
  Sender: FDA-Public Use
  Company Number: US-TEVA-2019-US-1029089

PATIENT
  Sex: Female
  Weight: 44.9 kg

DRUGS (3)
  1. NORVASC [Concomitant]
     Active Substance: AMLODIPINE BESYLATE
     Dates: start: 2009
  2. METOPROLOL. [Concomitant]
     Active Substance: METOPROLOL
     Dates: start: 2009
  3. FEXOFENADINE [Suspect]
     Active Substance: FEXOFENADINE\FEXOFENADINE HYDROCHLORIDE
     Indication: PERENNIAL ALLERGY
     Dosage: 571, SINGLE
     Route: 065
     Dates: start: 20190312, end: 20190312

REACTIONS (1)
  - Choking [Unknown]

NARRATIVE: CASE EVENT DATE: 20190312
